FAERS Safety Report 7470588-5 (Version None)
Quarter: 2011Q2

REPORT INFORMATION
  Report Type: 
  Country: None (occurrence: None)
  Receive Date: 20110429
  Receipt Date: 20110414
  Transmission Date: 20111010
  Serious: Yes (Other)
  Sender: FDA-Public Use
  Company Number: 031713

PATIENT
  Age: 56 Year
  Sex: Male

DRUGS (11)
  1. MANNITOL [Concomitant]
  2. MAGNESIUM HYDROXIDE [Concomitant]
  3. AMLODIPINE [Concomitant]
  4. LEVETIRACETAM [Suspect]
     Indication: PARTIAL SEIZURES
     Dosage: 500, 1000  MG, BID, ORAL
     Route: 048
  5. BROMHEXINE [Concomitant]
  6. ITOPRIDE HYDROCHLORIDE [Concomitant]
  7. MEROPENEM [Concomitant]
  8. URSODIOL [Concomitant]
  9. STREPTODORNASE [Concomitant]
  10. RANITIDINE [Concomitant]
  11. ACETAMINOPHEN [Concomitant]

REACTIONS (1)
  - WHITE BLOOD CELL COUNT INCREASED [None]
